FAERS Safety Report 4495207-1 (Version None)
Quarter: 2004Q4

REPORT INFORMATION
  Report Type: 
  Country: None (occurrence: None)
  Receive Date: 20041104
  Receipt Date: 20041018
  Transmission Date: 20050328
  Serious: Yes (Death)
  Sender: FDA-Public Use
  Company Number: 2004-BP-10360RO

PATIENT
  Age: 51 Year
  Sex: 0

DRUGS (3)
  1. COCAINE HCL TOPICAL SOLUTION, 10% (COCAINE) [Suspect]
  2. VENLAFAXINE (VENLAFAXINE) [Suspect]
  3. MORPHINE SUL TAB [Suspect]

REACTIONS (4)
  - ASPIRATION [None]
  - CARDIO-RESPIRATORY ARREST [None]
  - MULTIPLE DRUG OVERDOSE INTENTIONAL [None]
  - POLYSUBSTANCE ABUSE [None]
